FAERS Safety Report 8302072-0 (Version None)
Quarter: 2012Q2

REPORT INFORMATION
  Report Type: 
  Country: None (occurrence: None)
  Receive Date: 20120420
  Receipt Date: 20120418
  Transmission Date: 20120825
  Serious: Yes (Hospitalization, Disabling, Other)
  Sender: FDA-Public Use
  Company Number: US-MERCK-1103USA02108

PATIENT
  Age: 59 Year
  Sex: Female

DRUGS (5)
  1. ALENDRONATE SODIUM [Suspect]
     Indication: OSTEOPENIA
     Route: 048
     Dates: start: 20080401, end: 20090401
  2. ALENDRONATE SODIUM [Suspect]
     Indication: OSTEOPOROSIS
     Route: 048
     Dates: start: 20080401, end: 20090401
  3. FOSAMAX [Suspect]
     Route: 065
  4. FOSAMAX [Suspect]
     Indication: OSTEOPOROSIS
     Route: 048
     Dates: start: 20051001, end: 20080301
  5. FOSAMAX [Suspect]
     Indication: OSTEOPENIA
     Route: 048
     Dates: start: 20051001, end: 20080301

REACTIONS (54)
  - JOINT INSTABILITY [None]
  - ORAL HERPES [None]
  - SOMNOLENCE [None]
  - VOCAL CORD DISORDER [None]
  - HERPES ZOSTER [None]
  - HYPOAESTHESIA ORAL [None]
  - INTERVERTEBRAL DISC PROTRUSION [None]
  - EAR INFECTION [None]
  - PRURITUS [None]
  - ORAL INFECTION [None]
  - ARTHRALGIA [None]
  - HYPOXIA [None]
  - ADENOIDAL DISORDER [None]
  - ASTHENIA [None]
  - FALL [None]
  - PSEUDOEPITHELIOMATOUS HYPERPLASIA [None]
  - OSTEONECROSIS OF JAW [None]
  - BASAL CELL CARCINOMA [None]
  - OSTEOARTHRITIS [None]
  - HERNIA OBSTRUCTIVE [None]
  - OSTEOMYELITIS [None]
  - NECK PAIN [None]
  - FATIGUE [None]
  - FALLOPIAN TUBE DISORDER [None]
  - TONSILLAR DISORDER [None]
  - CYST [None]
  - CARPAL TUNNEL SYNDROME [None]
  - ANXIETY [None]
  - DEAFNESS [None]
  - CARDIAC MURMUR [None]
  - DEPRESSION [None]
  - HYPERTENSION [None]
  - EAR PRURITUS [None]
  - ARTHRITIS [None]
  - MUSCULOSKELETAL STIFFNESS [None]
  - ACNE [None]
  - BENIGN LARYNGEAL NEOPLASM [None]
  - SNORING [None]
  - BURSITIS [None]
  - DRY SKIN [None]
  - SPINAL OSTEOARTHRITIS [None]
  - UTERINE DISORDER [None]
  - GASTROOESOPHAGEAL REFLUX DISEASE [None]
  - TOOTH FRACTURE [None]
  - RADICULOPATHY [None]
  - ORAL DISORDER [None]
  - INTERVERTEBRAL DISC DISORDER [None]
  - OSTEITIS [None]
  - DYSPHONIA [None]
  - TEMPOROMANDIBULAR JOINT SYNDROME [None]
  - SLEEP DISORDER [None]
  - ROTATOR CUFF SYNDROME [None]
  - INCREASED TENDENCY TO BRUISE [None]
  - APHTHOUS STOMATITIS [None]
